FAERS Safety Report 5137681-3 (Version None)
Quarter: 2006Q4

REPORT INFORMATION
  Report Type: 
  Country: None (occurrence: None)
  Receive Date: 20061030
  Receipt Date: 20051214
  Transmission Date: 20070319
  Serious: No
  Sender: FDA-Public Use
  Company Number: US-GLAXOSMITHKLINE-A0585888A

PATIENT
  Sex: Female

DRUGS (3)
  1. ADVAIR HFA [Suspect]
     Indication: ASTHMA
     Dosage: 1BLS TWICE PER DAY
     Route: 055
     Dates: end: 20051212
  2. PROVENTIL INHALATION [Concomitant]
  3. ATENOLOL [Concomitant]
     Dosage: 50MG PER DAY
     Route: 065

REACTIONS (4)
  - DIZZINESS [None]
  - FEELING DRUNK [None]
  - HYPERVENTILATION [None]
  - LACTOSE INTOLERANCE [None]
